FAERS Safety Report 10568076 (Version 1)
Quarter: 2014Q4

REPORT INFORMATION
  Report Type: Spontaneous
  Country: CN (occurrence: None)
  Receive Date: 20141104
  Receipt Date: 20141104
  Transmission Date: 20150529
  Serious: Yes (Hospitalization)
  Sender: FDA-Public Use
  Company Number: CN2014GSK011173

PATIENT
  Age: 36 Year
  Sex: Female

DRUGS (2)
  1. HEPTODIN [Suspect]
     Active Substance: LAMIVUDINE
     Indication: HEPATITIS B
     Route: 048
     Dates: start: 20130401, end: 20140614
  2. HYDROXYCARBAMIDE [Concomitant]
     Active Substance: HYDROXYUREA

REACTIONS (4)
  - Gingival swelling [None]
  - Heart rate increased [None]
  - Discomfort [None]
  - Anaemia [None]

NARRATIVE: CASE EVENT DATE: 20140610
